FAERS Safety Report 19240753 (Version 1)
Quarter: 2021Q2

REPORT INFORMATION
  Report Type: Spontaneous
  Country: US (occurrence: US)
  Receive Date: 20210511
  Receipt Date: 20210511
  Transmission Date: 20210717
  Serious: Yes (Hospitalization, Other)
  Sender: FDA-Public Use
  Company Number: US-HIKMA PHARMACEUTICALS USA INC.-US-H14001-21-54371

PATIENT
  Age: 81 Year
  Sex: Male

DRUGS (1)
  1. DIAZEPAM. [Suspect]
     Active Substance: DIAZEPAM
     Indication: NEUROPSYCHIATRIC SYMPTOMS
     Dosage: UNKNOWN
     Route: 065

REACTIONS (2)
  - Delirium [Recovering/Resolving]
  - Drug withdrawal syndrome [Recovering/Resolving]
